FAERS Safety Report 8107718-8 (Version None)
Quarter: 2012Q1

REPORT INFORMATION
  Report Type: 
  Country: None (occurrence: None)
  Receive Date: 20120202
  Receipt Date: 20120127
  Transmission Date: 20120608
  Serious: Yes (Other)
  Sender: FDA-Public Use
  Company Number: DE-JNJFOC-20111204453

PATIENT
  Sex: Female
  Weight: 62 kg

DRUGS (4)
  1. NALOXONE [Concomitant]
     Indication: PRODUCT USED FOR UNKNOWN INDICATION
     Route: 048
  2. PALEXIA RETARD [Suspect]
     Indication: POST HERPETIC NEURALGIA
     Dosage: 4400 MG: CUMULATIVE DOSE TO FIRST REACTION
     Route: 048
     Dates: start: 20101228, end: 20110107
  3. DULOXETIME HYDROCHLORIDE [Concomitant]
     Indication: PRODUCT USED FOR UNKNOWN INDICATION
     Route: 065
  4. PREGABALIN [Concomitant]
     Indication: PRODUCT USED FOR UNKNOWN INDICATION
     Route: 048

REACTIONS (3)
  - ABDOMINAL PAIN UPPER [None]
  - MYOCARDIAL INFARCTION [None]
  - NAUSEA [None]
